FAERS Safety Report 14233000 (Version 1)
Quarter: 2017Q4

REPORT INFORMATION
  Report Type: Spontaneous
  Country: US (occurrence: None)
  Receive Date: 20171128
  Receipt Date: 20171128
  Transmission Date: 20180321
  Serious: Yes (Death, Hospitalization)
  Sender: FDA-Public Use
  Company Number: None

PATIENT
  Age: 64 Year
  Sex: Female
  Weight: 81.1 kg

DRUGS (1)
  1. MEMANTINE HYDROCHLORIDE. [Suspect]
     Active Substance: MEMANTINE HYDROCHLORIDE
     Dates: end: 20171026

REACTIONS (6)
  - Fall [None]
  - Speech disorder [None]
  - Metastases to liver [None]
  - Metastases to central nervous system [None]
  - Thrombocytopenia [None]
  - Memory impairment [None]

NARRATIVE: CASE EVENT DATE: 20171017
